FAERS Safety Report 5709027-0 (Version None)
Quarter: 2008Q2

REPORT INFORMATION
  Report Type: 
  Country: None (occurrence: None)
  Receive Date: 20080416
  Receipt Date: 20080416
  Transmission Date: 20081010
  Serious: Yes (Hospitalization)
  Sender: FDA-Public Use
  Company Number: None

PATIENT
  Age: 24 Year
  Sex: Male
  Weight: 113.4 kg

DRUGS (2)
  1. LAMOTRIGINE [Suspect]
     Indication: BIPOLAR DISORDER
     Dosage: 25MG EVERY DAY PO
     Route: 048
     Dates: start: 20080227, end: 20080331
  2. LAMOTRIGINE [Suspect]
     Indication: MANIA
     Dosage: 25MG EVERY DAY PO
     Route: 048
     Dates: start: 20080227, end: 20080331

REACTIONS (1)
  - RASH PAPULAR [None]
